FAERS Safety Report 6310761-2 (Version None)
Quarter: 2009Q3

REPORT INFORMATION
  Report Type: 
  Country: None (occurrence: None)
  Receive Date: 20090811
  Receipt Date: 20090731
  Transmission Date: 20100115
  Serious: Yes (Other)
  Sender: FDA-Public Use
  Company Number: GXKR2009JP08791

PATIENT
  Age: 37 Year
  Sex: Male

DRUGS (4)
  1. PROPOFOL [Suspect]
     Indication: INDUCTION OF ANAESTHESIA
  2. ROCURONIUM BROMIDE [Suspect]
     Indication: MUSCLE RELAXANT THERAPY
  3. SEVOFLURANE [Suspect]
     Indication: MAINTENANCE OF ANAESTHESIA
  4. VECURONIUM BROMIDE [Suspect]
     Indication: ANAESTHESIA

REACTIONS (1)
  - RHABDOMYOLYSIS [None]
